FAERS Safety Report 8920548 (Version 3)
Quarter: 2013Q1

REPORT INFORMATION
  Report Type: Spontaneous
  Country: CA (occurrence: CA)
  Receive Date: 20121122
  Receipt Date: 20130218
  Transmission Date: 20140127
  Serious: Yes (Other)
  Sender: FDA-Public Use
  Company Number: CA-BRISTOL-MYERS SQUIBB COMPANY-17131889

PATIENT
  Age: 68 Year
  Sex: Male

DRUGS (8)
  1. SPRYCEL [Suspect]
     Indication: CHRONIC MYELOID LEUKAEMIA
     Route: 048
     Dates: start: 20111130
  2. EPREX [Concomitant]
  3. ACETYLSALICYLIC ACID [Concomitant]
  4. ATACAND [Concomitant]
  5. AVODART [Concomitant]
  6. FOLIC ACID [Concomitant]
  7. VITAMIN B12 [Concomitant]
  8. IRON SUPPLEMENT [Concomitant]

REACTIONS (2)
  - Hepatitis B virus test positive [Unknown]
  - Liver function test abnormal [Unknown]
